FAERS Safety Report 5578825-9 (Version None)
Quarter: 2007Q4

REPORT INFORMATION
  Report Type: 
  Country: None (occurrence: None)
  Receive Date: 20071228
  Receipt Date: 20071221
  Transmission Date: 20080405
  Serious: Yes (Disabling)
  Sender: FDA-Public Use
  Company Number: OSCN-PR-0712S-0514

PATIENT
  Sex: Male

DRUGS (1)
  1. OMNISCAN [Suspect]
     Indication: DRUG USE FOR UNKNOWN INDICATION
     Dosage: 30 ML,
     Dates: start: 20030805, end: 20030805

REACTIONS (1)
  - NEPHROGENIC SYSTEMIC FIBROSIS [None]
